FAERS Safety Report 9332375 (Version 2)
Quarter: 2013Q3

REPORT INFORMATION
  Report Type: Report from Study
  Country: US (occurrence: US)
  Receive Date: 20130606
  Receipt Date: 20130731
  Transmission Date: 20140515
  Serious: Yes (Death, Hospitalization)
  Sender: FDA-Public Use
  Company Number: PHEH2013US012137

PATIENT
  Age: 54 Year
  Sex: Male

DRUGS (3)
  1. NEORAL [Suspect]
     Indication: RENAL TRANSPLANT
     Dosage: UNK UKN, UNK
     Route: 048
     Dates: start: 20130415
  2. AMLODIPINE [Concomitant]
     Indication: HYPERTENSION
  3. TRICYCLIC ANTIDEPRESSANTS [Concomitant]

REACTIONS (1)
  - Subdural haematoma [Fatal]
